FAERS Safety Report 5028130-4 (Version None)
Quarter: 2006Q2

REPORT INFORMATION
  Report Type: 
  Country: None (occurrence: None)
  Receive Date: 20060609
  Receipt Date: 20060530
  Transmission Date: 20061013
  Serious: Yes (Death)
  Sender: FDA-Public Use
  Company Number: 2006-05-2595

PATIENT
  Age: 77 Year
  Sex: Female

DRUGS (2)
  1. K-DUR 10 [Suspect]
     Dosage: ORAL
     Route: 048
  2. . [Concomitant]

REACTIONS (1)
  - DEATH [None]
